FAERS Safety Report 11638724 (Version 2)
Quarter: 2015Q4

REPORT INFORMATION
  Report Type: Spontaneous
  Country: FR (occurrence: FR)
  Receive Date: 20151016
  Receipt Date: 20151019
  Transmission Date: 20160304
  Serious: Yes (Other)
  Sender: FDA-Public Use
  Company Number: FR-009507513-1507FRA008212

PATIENT
  Age: 40 Year
  Sex: Female
  Weight: 51 kg

DRUGS (3)
  1. NEXPLANON [Suspect]
     Active Substance: ETONOGESTREL
     Indication: CONTRACEPTION
     Dosage: UNK (FIRST NEXPLANON)
     Route: 059
     Dates: start: 20120403, end: 20150403
  2. NEXPLANON [Suspect]
     Active Substance: ETONOGESTREL
     Dosage: UNK (SECOND NEXPLANON) IN THE LEFT ARM
     Route: 059
     Dates: start: 20150403, end: 20150728
  3. NEXPLANON [Suspect]
     Active Substance: ETONOGESTREL
     Dosage: UNK (THIRD NEXPLANON)
     Route: 059
     Dates: start: 20150728

REACTIONS (4)
  - Unintended pregnancy [Recovered/Resolved]
  - Pregnancy with implant contraceptive [Unknown]
  - Abortion spontaneous [Unknown]
  - Complication of pregnancy [Unknown]

NARRATIVE: CASE EVENT DATE: 2015
